FAERS Safety Report 9770269 (Version 2)
Quarter: 2014Q1

REPORT INFORMATION
  Report Type: Spontaneous
  Country: US (occurrence: US)
  Receive Date: 20131218
  Receipt Date: 20140207
  Transmission Date: 20141002
  Serious: Yes (Hospitalization)
  Sender: FDA-Public Use
  Company Number: US-FRI-1000052307

PATIENT
  Age: 64 Year
  Sex: Female

DRUGS (12)
  1. SAVELLA [Suspect]
     Indication: FIBROMYALGIA
     Dosage: 12.5 MG
     Route: 048
     Dates: start: 20131129, end: 20131129
  2. SAVELLA [Suspect]
     Dosage: 25 MG
     Route: 048
     Dates: start: 20131130, end: 20131201
  3. SAVELLA [Suspect]
     Dosage: 50 MG
     Route: 048
     Dates: start: 20131202, end: 20131205
  4. SAVELLA [Suspect]
     Indication: FIBROMYALGIA
     Dosage: 100 MG
     Route: 048
     Dates: start: 20131206, end: 20131208
  5. METFORMIN [Concomitant]
     Indication: TYPE 2 DIABETES MELLITUS
  6. VICTOZA [Concomitant]
     Indication: TYPE 2 DIABETES MELLITUS
  7. PRAVASTATIN [Concomitant]
     Indication: BLOOD CHOLESTEROL INCREASED
  8. HYDROCHLOROTHIAZIDE [Concomitant]
     Indication: HYPERTENSION
  9. NORVASC [Concomitant]
     Indication: HYPERTENSION
  10. LOSARTAN [Concomitant]
     Indication: HYPERTENSION
  11. NEXIUM [Concomitant]
  12. PRISTIQ [Concomitant]

REACTIONS (1)
  - Hypersensitivity [Recovered/Resolved]
